FAERS Safety Report 5001238-5 (Version None)
Quarter: 2006Q2

REPORT INFORMATION
  Report Type: 
  Country: None (occurrence: None)
  Receive Date: 20060501
  Receipt Date: 20060421
  Transmission Date: 20061013
  Serious: Yes (Other)
  Sender: FDA-Public Use
  Company Number: 2006054591

PATIENT
  Sex: Female
  Weight: 77.1115 kg

DRUGS (13)
  1. CELEBREX [Suspect]
     Indication: OSTEOARTHRITIS
     Dosage: 100 MG (100 MG, 1 IN 1 D)
     Dates: end: 20060101
  2. ALLOPURINOL [Suspect]
     Indication: NEPHROLITHIASIS
     Dates: end: 20040101
  3. ALCOHOL (ETHANOL) [Suspect]
     Indication: ILL-DEFINED DISORDER
  4. ACETAMINOPHEN [Concomitant]
  5. SYNTHROID [Concomitant]
  6. OGEN [Concomitant]
  7. POTASSIUM CHLORIDE [Concomitant]
  8. CALCIUM (CALCIUM) [Concomitant]
  9. MAGNESIUM (MAGNESIUM) [Concomitant]
  10. MULTIVITAMIN [Concomitant]
  11. QUININE SULFATE [Concomitant]
  12. ALL OTHER THERAPEUTIC PRODUCTS (ALL OTHER THERAPEUTIC PRODUCTS) [Concomitant]
  13. BENICAR [Concomitant]

REACTIONS (6)
  - ASPARTATE AMINOTRANSFERASE INCREASED [None]
  - DYSPNOEA [None]
  - INFECTION [None]
  - INJECTION SITE ABSCESS [None]
  - LIVER FUNCTION TEST ABNORMAL [None]
  - OSTEOMYELITIS [None]
